FAERS Safety Report 18832227 (Version 1)
Quarter: 2021Q1

REPORT INFORMATION
  Report Type: Spontaneous
  Country: US (occurrence: US)
  Receive Date: 20210203
  Receipt Date: 20210203
  Transmission Date: 20210419
  Serious: No
  Sender: FDA-Public Use
  Company Number: US-SA-2021SA029189

PATIENT
  Sex: Female

DRUGS (5)
  1. HYDROCORTISONE. [Concomitant]
     Active Substance: HYDROCORTISONE
  2. EPINEPHRINE [EPINEPHRINE HYDROCHLORIDE] [Concomitant]
  3. MIRENA [Concomitant]
     Active Substance: LEVONORGESTREL
  4. BIOTINE [BIOTIN] [Concomitant]
     Active Substance: BIOTIN
  5. DUPIXENT [Suspect]
     Active Substance: DUPILUMAB
     Indication: DERMATITIS ATOPIC
     Dosage: 300 MG, QOW
     Route: 058
     Dates: start: 2018

REACTIONS (5)
  - Sleep disorder [Unknown]
  - Dry skin [Unknown]
  - Eczema [Unknown]
  - Pruritus [Unknown]
  - Dry eye [Recovering/Resolving]

NARRATIVE: CASE EVENT DATE: 2018
